FAERS Safety Report 17365544 (Version 1)
Quarter: 2020Q1

REPORT INFORMATION
  Report Type: Spontaneous
  Country: BE (occurrence: BE)
  Receive Date: 20200204
  Receipt Date: 20200204
  Transmission Date: 20200409
  Serious: Yes (Hospitalization, Other)
  Sender: FDA-Public Use
  Company Number: BE-ALVOGEN-2020-ALVOGEN-102500

PATIENT
  Age: 77 Year
  Sex: Female

DRUGS (1)
  1. TRAZODONE [Suspect]
     Active Substance: TRAZODONE HYDROCHLORIDE
     Indication: DEPRESSION
     Dosage: IMMEDIATE RELEASE
     Route: 048

REACTIONS (4)
  - Sinus bradycardia [Recovering/Resolving]
  - Coma [Recovering/Resolving]
  - Overdose [Recovering/Resolving]
  - Electrocardiogram QT prolonged [Recovering/Resolving]
